FAERS Safety Report 12226308 (Version 3)
Quarter: 2016Q2

REPORT INFORMATION
  Report Type: Spontaneous
  Country: US (occurrence: US)
  Receive Date: 20160331
  Receipt Date: 20160523
  Transmission Date: 20160815
  Serious: Yes (Other)
  Sender: FDA-Public Use
  Company Number: US-TEVA-647186USA

PATIENT
  Age: 48 Year
  Sex: Female

DRUGS (2)
  1. ZECUITY [Suspect]
     Active Substance: SUMATRIPTAN SUCCINATE
     Route: 062
     Dates: start: 20160310, end: 20160310
  2. ZECUITY [Suspect]
     Active Substance: SUMATRIPTAN SUCCINATE
     Indication: MIGRAINE
     Route: 062
     Dates: start: 20160306, end: 20160306

REACTIONS (12)
  - Application site vesicles [Unknown]
  - Application site exfoliation [Unknown]
  - Drug ineffective [Unknown]
  - Diarrhoea [Unknown]
  - Application site burn [Recovered/Resolved]
  - Abdominal pain [Unknown]
  - Application site paraesthesia [Unknown]
  - Sunburn [Recovered/Resolved]
  - Application site urticaria [Unknown]
  - Nausea [Unknown]
  - Application site erythema [Recovered/Resolved]
  - Application site pain [Recovered/Resolved]

NARRATIVE: CASE EVENT DATE: 201603
